FAERS Safety Report 8422272-9 (Version None)
Quarter: 2012Q2

REPORT INFORMATION
  Report Type: 
  Country: None (occurrence: None)
  Receive Date: 20120608
  Receipt Date: 20120525
  Transmission Date: 20120825
  Serious: Yes (Hospitalization)
  Sender: FDA-Public Use
  Company Number: GB-BAUSCH-2012BL003713

PATIENT
  Age: 56 Year
  Sex: Male
  Weight: 101 kg

DRUGS (7)
  1. AMOXICILLIN [Concomitant]
     Indication: LOWER RESPIRATORY TRACT INFECTION BACTERIAL
  2. SIMVASTATIN [Suspect]
     Indication: HYPERCHOLESTEROLAEMIA
     Route: 048
     Dates: start: 20120301, end: 20120511
  3. OMEPRAZOLE [Concomitant]
  4. PREDNISOLONE [Suspect]
     Indication: CHRONIC OBSTRUCTIVE PULMONARY DISEASE
     Route: 048
     Dates: start: 20120509, end: 20120511
  5. CYANOCOBALAMIN [Concomitant]
  6. FOLIC ACID [Concomitant]
  7. ALBUTEROL [Concomitant]

REACTIONS (4)
  - RENAL FAILURE ACUTE [None]
  - HYPERKALAEMIA [None]
  - TACHYCARDIA [None]
  - RHABDOMYOLYSIS [None]
